FAERS Safety Report 7481329-X (Version None)
Quarter: 2011Q2

REPORT INFORMATION
  Report Type: 
  Country: None (occurrence: None)
  Receive Date: 20110516
  Receipt Date: 20110505
  Transmission Date: 20111010
  Serious: Yes (Hospitalization)
  Sender: FDA-Public Use
  Company Number: PHHY2011SE37957

PATIENT
  Sex: Female

DRUGS (8)
  1. METOPROLOL SUCCINATE [Concomitant]
     Dosage: UNK
  2. SIMVASTATIN [Concomitant]
  3. TROMBYL [Concomitant]
     Dosage: 75 MG, UNK
  4. FURIX [Concomitant]
     Dosage: 30 MG, UNK
  5. VOLTAREN [Suspect]
     Indication: BACK PAIN
     Dosage: UNK
     Dates: start: 20110318, end: 20110319
  6. ENALAPRIL [Concomitant]
     Dosage: UNK
  7. LEVOTHYROXINE SODIUM [Concomitant]
     Dosage: 125 UG, UNK
  8. IMDUR [Concomitant]
     Dosage: 30 MG, UNK

REACTIONS (7)
  - COUGH [None]
  - DYSPHONIA [None]
  - OSTEOARTHRITIS [None]
  - RASH [None]
  - OSTEOSCLEROSIS [None]
  - HYPERSENSITIVITY [None]
  - PRURITUS [None]
